FAERS Safety Report 6161330-9 (Version None)
Quarter: 2009Q2

REPORT INFORMATION
  Report Type: 
  Country: None (occurrence: None)
  Receive Date: 20090421
  Receipt Date: 20090414
  Transmission Date: 20091009
  Serious: Yes (Life-Threatening, Other)
  Sender: FDA-Public Use
  Company Number: BE-AVENTIS-200910734EU

PATIENT
  Age: 60 Year
  Sex: Male

DRUGS (4)
  1. CLEXANE [Suspect]
     Indication: PROPHYLAXIS
     Route: 042
     Dates: start: 20081217, end: 20081217
  2. ASPIRIN [Concomitant]
     Indication: PERCUTANEOUS CORONARY INTERVENTION
     Route: 048
     Dates: start: 20081216
  3. CLOPIDOGREL [Concomitant]
     Indication: PERCUTANEOUS CORONARY INTERVENTION
     Route: 048
     Dates: start: 20081216
  4. EPTIFIBATIDE [Concomitant]
     Indication: PERCUTANEOUS CORONARY INTERVENTION
     Route: 042
     Dates: start: 20081216, end: 20081216

REACTIONS (3)
  - CORONARY ARTERY OCCLUSION [None]
  - ISCHAEMIA [None]
  - SHOCK [None]
